FAERS Safety Report 4272570-8 (Version None)
Quarter: 2004Q1

REPORT INFORMATION
  Report Type: 
  Country: None (occurrence: None)
  Receive Date: 20040114
  Receipt Date: 20040114
  Transmission Date: 20041129
  Serious: No
  Sender: FDA-Public Use
  Company Number: None

PATIENT
  Age: 61 Year
  Sex: Male
  Weight: 104.3273 kg

DRUGS (1)
  1. COREG [Suspect]
     Dosage: CAN'T REMEMBER
     Dates: start: 20030301

REACTIONS (3)
  - CARDIAC DISORDER [None]
  - DYSPNOEA EXERTIONAL [None]
  - RESPIRATORY DISORDER [None]
